FAERS Safety Report 6608388-8 (Version None)
Quarter: 2010Q1

REPORT INFORMATION
  Report Type: 
  Country: None (occurrence: None)
  Receive Date: 20100301
  Receipt Date: 20100218
  Transmission Date: 20100710
  Serious: No
  Sender: FDA-Public Use
  Company Number: JP-ASTRAZENECA-2009SE32696

PATIENT
  Age: 73 Year
  Sex: Male
  Weight: 60 kg

DRUGS (7)
  1. IRESSA [Suspect]
     Indication: LUNG ADENOCARCINOMA
     Route: 048
     Dates: start: 20081205, end: 20090119
  2. IRESSA [Suspect]
     Route: 048
     Dates: start: 20090223, end: 20090309
  3. IRESSA [Suspect]
     Route: 048
     Dates: start: 20090424, end: 20090510
  4. AMARYL [Concomitant]
     Route: 048
     Dates: start: 20000101
  5. GLYCORAN [Concomitant]
     Route: 048
     Dates: start: 20000101
  6. ACTOS [Concomitant]
     Route: 048
     Dates: start: 20000101
  7. LEUPROLIDE ACETATE [Concomitant]
     Route: 058
     Dates: start: 20030101

REACTIONS (2)
  - ALANINE AMINOTRANSFERASE INCREASED [None]
  - ASPARTATE AMINOTRANSFERASE INCREASED [None]
